FAERS Safety Report 25592388 (Version 3)
Quarter: 2025Q3

REPORT INFORMATION
  Report Type: Report from Study
  Country: EU (occurrence: EU)
  Receive Date: 20250722
  Receipt Date: 20250904
  Transmission Date: 20251021
  Serious: Yes (Hospitalization)
  Sender: PFIZER
  Company Number: EU-PFIZER INC-PV202500085026

PATIENT
  Age: 63 Year
  Sex: Male
  Weight: 67 kg

DRUGS (1)
  1. ETRASIMOD [Suspect]
     Active Substance: ETRASIMOD
     Indication: Colitis ulcerative
     Dosage: 2 MG PER DAY
     Dates: start: 20250510

REACTIONS (1)
  - Cerebellar infarction [Recovered/Resolved]

NARRATIVE: CASE EVENT DATE: 20250710
